FAERS Safety Report 8609344-0 (Version None)
Quarter: 2012Q3

REPORT INFORMATION
  Report Type: 
  Country: None (occurrence: None)
  Receive Date: 20120821
  Receipt Date: 20120817
  Transmission Date: 20120928
  Serious: Yes (Hospitalization)
  Sender: FDA-Public Use
  Company Number: PHHY2011JP85106

PATIENT
  Sex: Male

DRUGS (67)
  1. PROGRAF [Suspect]
     Indication: RENAL TRANSPLANT
     Dosage: 0.5 MG, UNK
     Route: 042
     Dates: start: 20100915
  2. PROGRAF [Suspect]
     Dosage: 2.8 MG, UNK
     Route: 048
     Dates: start: 20101018, end: 20101027
  3. PROGRAF [Suspect]
     Dosage: 2.4 MG, UNK
     Route: 048
     Dates: start: 20101102, end: 20101104
  4. OMEPRAZOLE [Concomitant]
     Indication: PROPHYLAXIS AGAINST GASTROINTESTINAL ULCER
     Dosage: 20 MG, UNK
     Route: 042
     Dates: start: 20100916, end: 20100929
  5. PREDNISOLONE [Concomitant]
     Dosage: 7.5 MG, UNK
     Route: 048
  6. PREDNISOLONE [Concomitant]
     Dosage: 5 MG, UNK
     Route: 048
  7. PREDNISOLONE [Suspect]
     Dosage: 17.5 MG, UNK
     Route: 042
     Dates: start: 20100918
  8. PROGRAF [Suspect]
     Dosage: 0.3 MG, UNK
     Route: 042
     Dates: start: 20100915
  9. PROGRAF [Suspect]
     Dosage: 0.25 MG, UNK
     Route: 042
     Dates: start: 20100922
  10. MYCOPHENOLATE MOFETIL (CELLCEPT) [Suspect]
     Indication: RENAL TRANSPLANT
     Dosage: 500 MG, UNK
     Route: 048
     Dates: start: 20100920, end: 20101010
  11. NEORAL [Concomitant]
     Dosage: 50 MG, UNK
     Route: 048
  12. RISPERDAL [Concomitant]
     Indication: DYSKINESIA
     Dosage: 0.6 ML, UNK
     Route: 048
     Dates: start: 20110228
  13. MIDAZOLAM HCL [Concomitant]
     Dosage: 50 MG, UNK
     Route: 042
  14. FUTHAN [Concomitant]
     Indication: THROMBOSIS PROPHYLAXIS
     Dosage: 50 MG, UNK
     Route: 042
     Dates: start: 20100916, end: 20100927
  15. SIMULECT [Suspect]
     Dosage: 10 MG, UNK
     Route: 042
     Dates: start: 20100922
  16. PROGRAF [Suspect]
     Dosage: 2.8 MG, UNK
     Route: 048
     Dates: start: 20101105, end: 20101108
  17. MYCOPHENOLATE MOFETIL (CELLCEPT) [Suspect]
     Dosage: 250 MG, UNK
     Route: 048
     Dates: start: 20101115, end: 20101126
  18. CEFAZOLIN [Concomitant]
     Indication: INFECTION PROPHYLAXIS
     Dosage: 300 MG, UNK
     Route: 042
     Dates: start: 20100915, end: 20101002
  19. CLOSTRIDIUM BUTYRICUM [Concomitant]
     Dosage: 1 G, UNK
     Route: 048
  20. CLOSTRIDIUM BUTYRICUM [Concomitant]
     Dosage: 0.5 G, UNK
     Route: 048
  21. CLOSTRIDIUM BUTYRICUM [Concomitant]
     Dosage: 1.5 G, UNK
     Route: 048
  22. FLORINEF [Concomitant]
     Indication: HYPERKALAEMIA
     Dosage: 0.03 MG, UNK
     Route: 048
     Dates: start: 20110303
  23. ASPIRIN [Concomitant]
     Indication: THROMBOSIS PROPHYLAXIS
     Dosage: 30 MG, UNK
     Route: 048
     Dates: start: 20100927, end: 20101010
  24. PREDNISOLONE [Concomitant]
     Dosage: 10 MG, UNK
     Route: 050
  25. PROGRAF [Suspect]
     Dosage: 2.2 MG, UNK
     Route: 048
     Dates: start: 20101028, end: 20101101
  26. MYCOPHENOLATE MOFETIL (CELLCEPT) [Suspect]
     Dosage: 250 MG, UNK
     Route: 048
     Dates: start: 20101012, end: 20101109
  27. MYCOPHENOLATE MOFETIL (CELLCEPT) [Suspect]
     Dosage: 500 MG, UNK
     Route: 048
     Dates: start: 20101126, end: 20110129
  28. NEORAL [Concomitant]
     Indication: RENAL TRANSPLANT
     Dosage: 50 MG, UNK
     Route: 048
     Dates: start: 20101111
  29. NEORAL [Concomitant]
     Dosage: 60 MG, UNK
     Route: 048
  30. CEFAZOLIN [Concomitant]
     Dosage: 900 MG, UNK
     Route: 042
  31. DEPAKENE [Concomitant]
     Indication: EPILEPSY
     Dosage: 150 MG, UNK
     Route: 048
     Dates: start: 20100916
  32. DEPAKENE [Concomitant]
     Dosage: 250 MG, UNK
     Route: 048
  33. PREDNISOLONE [Concomitant]
     Indication: RENAL TRANSPLANT
     Dosage: 10 MG, UNK
     Route: 048
     Dates: start: 20100924
  34. PREDNISOLONE [Concomitant]
     Dosage: 5 MG, UNK
     Route: 048
  35. PREDNISOLONE [Concomitant]
     Dosage: 4 MG, UNK
     Route: 048
  36. PREDNISOLONE [Suspect]
     Dosage: 12.5 MG, UNK
     Route: 042
     Dates: start: 20100920
  37. PROGRAF [Suspect]
     Dosage: 2 MG, UNK
     Route: 048
     Dates: start: 20100929, end: 20101012
  38. PROGRAF [Suspect]
     Dosage: 2.4 MG, UNK
     Route: 048
     Dates: start: 20101109, end: 20101110
  39. NEORAL [Concomitant]
     Dosage: 80 MG, UNK
     Route: 048
  40. NEORAL [Concomitant]
     Dosage: 100 MG, UNK
     Route: 048
  41. CEFAZOLIN [Concomitant]
     Dosage: 900 MG, UNK
     Route: 042
  42. CLOSTRIDIUM BUTYRICUM [Concomitant]
     Dosage: 0.6 G, UNK
     Route: 048
  43. DANTRIUM [Concomitant]
     Indication: CEREBRAL PALSY
     Dosage: 25 MG, UNK
     Route: 048
     Dates: start: 20100917
  44. DANTRIUM [Concomitant]
     Dosage: 15 MG, UNK
     Route: 048
  45. DANTRIUM [Concomitant]
     Dosage: 25 MG, UNK
     Route: 048
  46. TANNALBIN [Concomitant]
     Indication: DIARRHOEA
     Dosage: 0.5 G, UNK
     Route: 048
     Dates: start: 20101203, end: 20101207
  47. FENTANYL [Concomitant]
     Indication: SEDATIVE THERAPY
     Dosage: 0.2 MG, UNK
     Route: 042
     Dates: start: 20100915, end: 20100926
  48. DEPAKENE [Concomitant]
     Dosage: 200 MG, UNK
     Route: 048
  49. LANSOPRAZOLE [Concomitant]
     Indication: PROPHYLAXIS AGAINST GASTROINTESTINAL ULCER
     Dosage: 75 MG, UNK
     Route: 048
     Dates: start: 20100929, end: 20101005
  50. PREDNISOLONE [Concomitant]
     Dosage: 5 MG, UNK
     Route: 048
  51. MYCOPHENOLATE MOFETIL (CELLCEPT) [Suspect]
     Dosage: 500 MG, UNK
     Route: 048
     Dates: start: 20101110, end: 20101114
  52. DANTRIUM [Concomitant]
     Dosage: 20 MG, UNK
     Route: 048
  53. MIDAZOLAM HCL [Concomitant]
     Indication: SEDATIVE THERAPY
     Dosage: 20 MG, UNK
     Route: 042
     Dates: start: 20100915, end: 20100926
  54. ROCURONIUM BROMIDE [Concomitant]
     Indication: SEDATIVE THERAPY
     Dosage: 10 MG, UNK
     Route: 042
     Dates: start: 20100917
  55. PREDNISOLONE [Concomitant]
     Dosage: 3 MG, UNK
     Route: 048
  56. LIORESAL [Concomitant]
     Indication: CEREBRAL PALSY
     Dosage: 5 MG, UNK
     Route: 048
     Dates: start: 20110221, end: 20110228
  57. LEVOTHYROXINE SODIUM [Concomitant]
     Dosage: 20 UG, UNK
     Route: 048
  58. LEVOTHYROXINE SODIUM [Concomitant]
     Dosage: 15 UG, UNK
     Route: 048
  59. SIMULECT [Suspect]
     Dosage: 10 MG, UNK
     Route: 042
     Dates: start: 20100915
  60. PREDNISOLONE [Suspect]
     Indication: RENAL TRANSPLANT
     Dosage: 10 MG, UNK
     Route: 042
     Dates: start: 20100915
  61. PREDNISOLONE [Suspect]
     Dosage: 20 MG, UNK
     Route: 042
     Dates: start: 20100916
  62. PREDNISOLONE [Suspect]
     Dosage: 15 MG, UNK
     Route: 042
     Dates: start: 20100919
  63. PREDNISOLONE [Suspect]
     Dosage: 10 MG, UNK
     Route: 042
     Dates: start: 20100921
  64. PROGRAF [Suspect]
     Dosage: 3.6 MG, UNK
     Route: 048
     Dates: start: 20101013, end: 20101017
  65. PRECEDEX [Concomitant]
     Indication: SEDATIVE THERAPY
     Dosage: 200 UG, UNK
     Route: 042
     Dates: start: 20100915, end: 20100928
  66. LEVOTHYROXINE SODIUM [Concomitant]
     Indication: HYPOTHYROIDISM
     Dosage: 30 UG, UNK
     Route: 048
  67. CLOSTRIDIUM BUTYRICUM [Concomitant]
     Indication: DIARRHOEA
     Dosage: 0.6 G, UNK
     Route: 048
     Dates: start: 20101104

REACTIONS (12)
  - HYPERKALAEMIA [None]
  - HYPERTENSION [None]
  - DYSKINESIA [None]
  - HYPOTENSION [None]
  - BRONCHITIS [None]
  - PNEUMONIA ASPIRATION [None]
  - DIARRHOEA [None]
  - CYTOMEGALOVIRUS VIRAEMIA [None]
  - EYE DISCHARGE [None]
  - HYPONATRAEMIA [None]
  - GASTROINTESTINAL HYPERMOTILITY [None]
  - URINE OUTPUT DECREASED [None]
